FAERS Safety Report 19159492 (Version 1)
Quarter: 2021Q2

REPORT INFORMATION
  Report Type: Report from Study
  Country: US (occurrence: US)
  Receive Date: 20210420
  Receipt Date: 20210420
  Transmission Date: 20210717
  Serious: Yes (Hospitalization, Other)
  Sender: FDA-Public Use
  Company Number: US-TAKEDA-2021TUS023887

PATIENT
  Age: 82 Year

DRUGS (1)
  1. CUVITRU [Suspect]
     Active Substance: HUMAN IMMUNOGLOBULIN G
     Indication: PRIMARY IMMUNODEFICIENCY SYNDROME
     Dosage: 26 GRAM, Q2WEEKS
     Route: 065

REACTIONS (3)
  - Malaise [Unknown]
  - Stent placement [Unknown]
  - Coagulopathy [Unknown]

NARRATIVE: CASE EVENT DATE: 20210413
